FAERS Safety Report 4853224-3 (Version None)
Quarter: 2005Q4

REPORT INFORMATION
  Report Type: 
  Country: None (occurrence: None)
  Receive Date: 20051214
  Receipt Date: 20051206
  Transmission Date: 20060501
  Serious: Yes (Life-Threatening)
  Sender: FDA-Public Use
  Company Number: US-GLAXOSMITHKLINE-A0585040B

PATIENT
  Age: 58 Year
  Sex: Female
  Weight: 62 kg

DRUGS (8)
  1. TOSITUMOMAB [Suspect]
     Indication: NON-HODGKIN'S LYMPHOMA
     Route: 042
     Dates: start: 19990415, end: 19990415
  2. IODINE I 131 TOSITUMOMAB [Suspect]
     Indication: NON-HODGKIN'S LYMPHOMA
     Route: 042
     Dates: start: 19990415, end: 19990415
  3. TOSITUMOMAB [Suspect]
     Route: 042
     Dates: start: 20050422, end: 20050422
  4. IODINE I 131 TOSITUMOMAB [Suspect]
     Route: 042
     Dates: start: 19990422, end: 19990422
  5. TOSITUMOMAB [Suspect]
     Route: 042
     Dates: start: 20050120, end: 20050120
  6. IODINE I 131 TOSITUMOMAB [Suspect]
     Route: 042
     Dates: start: 20050120, end: 20050120
  7. IBUPROFEN [Concomitant]
  8. CHINESE HERBS [Concomitant]

REACTIONS (1)
  - MALIGNANT HEPATOBILIARY NEOPLASM [None]
